FAERS Safety Report 8543936-2 (Version None)
Quarter: 2012Q3

REPORT INFORMATION
  Report Type: 
  Country: None (occurrence: None)
  Receive Date: 20120727
  Receipt Date: 20120724
  Transmission Date: 20120928
  Serious: Yes (Hospitalization, Other)
  Sender: FDA-Public Use
  Company Number: AT-PFIZER INC-2004201788AT

PATIENT
  Age: 70 Year
  Sex: Female
  Weight: 70 kg

DRUGS (18)
  1. LIVIEL [Concomitant]
     Indication: HORMONE REPLACEMENT THERAPY
     Dosage: UNK
     Dates: start: 20010501
  2. SEROXAT ^CIBA-GEIGY^ [Concomitant]
     Indication: DEPRESSION
     Dosage: UNK
     Dates: start: 19900701
  3. HYDROCORTISONE [Concomitant]
     Indication: BLOOD CORTICOTROPHIN DECREASED
     Dosage: UNK
     Dates: start: 19991013
  4. ACTONEL [Concomitant]
     Indication: OSTEOPOROSIS
     Dosage: UNK
     Dates: start: 20010501
  5. PULMICORT [Concomitant]
     Indication: ASTHMA
     Dosage: UNK
     Dates: start: 19990915
  6. DESMOPRESSIN [Concomitant]
     Indication: ANTIDIURETIC HORMONE ABNORMALITY
     Dosage: UNK
     Dates: start: 19991001
  7. TESTOVIRON [Concomitant]
     Indication: BLOOD FOLLICLE STIMULATING HORMONE DECREASED
  8. LESCOL [Concomitant]
     Indication: HYPERLIPIDAEMIA
     Dosage: UNK
     Dates: start: 20001115
  9. FORMOTEROL FUMARATE [Concomitant]
     Indication: ASTHMA
     Dosage: UNK
     Dates: start: 19990915
  10. LANSOPRAZOLE [Concomitant]
     Indication: MYOCARDIAL ISCHAEMIA
     Dosage: UNK
     Dates: start: 20030618
  11. TESTOVIRON [Concomitant]
     Indication: LUTEINISING HORMONE DEFICIENCY
  12. PROSTADILAT [Concomitant]
     Indication: BENIGN PROSTATIC HYPERPLASIA
     Dosage: UNK
     Dates: start: 20031125
  13. VITAMIN D [Concomitant]
     Indication: BONE DISORDER
     Dosage: UNK
     Dates: start: 19990815
  14. MAGNOSOLV ^ASTA MEDICA^ [Concomitant]
     Indication: MINERAL DEFICIENCY
     Dosage: UNK
     Dates: start: 19990815
  15. CARVEDILOL [Concomitant]
     Indication: MYOCARDIAL ISCHAEMIA
     Dosage: UNK
     Dates: start: 20030618
  16. GENOTROPIN [Suspect]
     Indication: HYPOPITUITARISM
     Dosage: 0.8 IU, 1X/DAY
     Dates: start: 20000307
  17. GENOTROPIN [Suspect]
     Dosage: 0.13 MG, 1X/DAY, SEVEN DAYS A WEEK
     Route: 058
     Dates: start: 20010620, end: 20020717
  18. LEVOTHYROXINE SODIUM [Concomitant]
     Indication: BLOOD THYROID STIMULATING HORMONE DECREASED
     Dosage: UNK
     Dates: start: 20020401

REACTIONS (1)
  - MULTIPLE MYELOMA [None]
